FAERS Safety Report 17955219 (Version 1)
Quarter: 2020Q2

REPORT INFORMATION
  Report Type: Report from Study
  Country: ES (occurrence: ES)
  Receive Date: 20200629
  Receipt Date: 20200629
  Transmission Date: 20200714
  Serious: Yes (Life-Threatening, Other)
  Sender: FDA-Public Use
  Company Number: ES-TEVA-2020-ES-1792505

PATIENT
  Age: 77 Year
  Sex: Female

DRUGS (8)
  1. LEVOFLOXACINO (2791A) [Suspect]
     Active Substance: LEVOFLOXACIN
     Indication: COVID-19
     Dosage: 1000 MILLIGRAM DAILY;
     Dates: start: 20200402, end: 20200408
  2. URBASON [Concomitant]
     Active Substance: METHYLPREDNISOLONE
     Dosage: 40 MG FIRST EVERY 8 HOURS, AT 5 DAYS EVERY 12
     Dates: start: 20200402, end: 20200414
  3. OMEPRAZOL (2141A) [Concomitant]
     Active Substance: OMEPRAZOLE
     Dosage: 1/24
     Dates: start: 20200402, end: 20200414
  4. PULMICORT TURBUHALER [Concomitant]
     Active Substance: BUDESONIDE
     Dosage: 6 DOSAGE FORMS DAILY; 2 PUFF EVERY 8 HOURS
     Dates: start: 20200402, end: 20200414
  5. CLEXANE [Concomitant]
     Active Substance: ENOXAPARIN SODIUM
     Dosage: 40/24 HOURS
     Dates: start: 20200402, end: 20200414
  6. HIDROXICLOROQUINA (2143A) [Suspect]
     Active Substance: HYDROXYCHLOROQUINE
     Indication: COVID-19
     Dosage: 800 MG 1 DAY + 400 MG THE REST
     Route: 048
     Dates: start: 20200402, end: 20200413
  7. LOPINAVIR+RITONAVIR [Suspect]
     Active Substance: LOPINAVIR\RITONAVIR
     Indication: COVID-19
     Dosage: 200/20 FOUR TIMES A DAY
     Dates: start: 20200402, end: 20200413
  8. VENTOLIN [Concomitant]
     Active Substance: ALBUTEROL SULFATE
     Dates: start: 20200402, end: 20200414

REACTIONS (6)
  - Disorientation [Recovered/Resolved]
  - Blood creatine phosphokinase increased [Recovered/Resolved]
  - Agitation [Recovered/Resolved]
  - Hyperbilirubinaemia [Recovered/Resolved]
  - Liver function test abnormal [Recovered/Resolved]
  - Urinary retention [Recovered/Resolved]

NARRATIVE: CASE EVENT DATE: 20200403
